FAERS Safety Report 18808745 (Version 2)
Quarter: 2021Q1

REPORT INFORMATION
  Report Type: Report from Study
  Country: CA (occurrence: CA)
  Receive Date: 20210129
  Receipt Date: 20210310
  Transmission Date: 20210419
  Serious: Yes (Hospitalization, Other)
  Sender: FDA-Public Use
  Company Number: CA-JNJFOC-20210135210

PATIENT
  Age: 14 Year
  Sex: Male
  Weight: 38.5 kg

DRUGS (3)
  1. REMICADE [Suspect]
     Active Substance: INFLIXIMAB
     Route: 042
     Dates: start: 20210119
  2. CORTISONE [Suspect]
     Active Substance: CORTISONE
     Indication: PRODUCT USED FOR UNKNOWN INDICATION
     Route: 065
  3. REMICADE [Suspect]
     Active Substance: INFLIXIMAB
     Indication: CROHN^S DISEASE
     Dosage: ON 21?JAN?2021, THE PATIENT RECEIVED 4TH INFUSION.
     Route: 042
     Dates: start: 20201028

REACTIONS (15)
  - Chest discomfort [Unknown]
  - Product use issue [Unknown]
  - Gastrointestinal tract irritation [Unknown]
  - Off label use [Unknown]
  - Nausea [Recovering/Resolving]
  - Dyspepsia [Unknown]
  - Patellofemoral pain syndrome [Unknown]
  - Spinal fracture [Unknown]
  - Haematemesis [Unknown]
  - Abdominal pain [Unknown]
  - Diarrhoea [Unknown]
  - Epistaxis [Not Recovered/Not Resolved]
  - Haematochezia [Unknown]
  - Rectal haemorrhage [Not Recovered/Not Resolved]
  - Rash pruritic [Recovering/Resolving]

NARRATIVE: CASE EVENT DATE: 202101
